FAERS Safety Report 8928974 (Version 1)
Quarter: 2012Q4

REPORT INFORMATION
  Report Type: Spontaneous
  Country: US (occurrence: None)
  Receive Date: 20121126
  Receipt Date: 20121126
  Transmission Date: 20130627
  Serious: Yes (Disabling)
  Sender: FDA-Public Use
  Company Number: None

PATIENT
  Sex: Male
  Weight: 108.86 kg

DRUGS (2)
  1. SIMVASTATIN [Suspect]
     Indication: CHOLESTEROL
     Route: 048
     Dates: start: 200912, end: 200904
  2. PRAVASTATIN [Suspect]
     Indication: CHOLESTEROL
     Route: 048
     Dates: start: 200905, end: 200909

REACTIONS (8)
  - Arthralgia [None]
  - Oedema peripheral [None]
  - Oedema peripheral [None]
  - Dyspnoea [None]
  - Pollakiuria [None]
  - Muscular weakness [None]
  - Muscular weakness [None]
  - Arthropathy [None]
